FAERS Safety Report 11943381 (Version 1)
Quarter: 2016Q1

REPORT INFORMATION
  Report Type: Spontaneous
  Country: US (occurrence: US)
  Receive Date: 20160125
  Receipt Date: 20160125
  Transmission Date: 20160526
  Serious: Yes (Other)
  Sender: FDA-Public Use
  Company Number: US-UNITED THERAPEUTICS-UNT-2015-013776

PATIENT
  Age: 42 Year
  Sex: Female

DRUGS (1)
  1. REMODULIN [Suspect]
     Active Substance: TREPROSTINIL
     Indication: PULMONARY ARTERIAL HYPERTENSION
     Dosage: 0.0556 ?G/KG, CONTINUING
     Route: 041
     Dates: start: 20120222

REACTIONS (1)
  - Device related infection [Unknown]

NARRATIVE: CASE EVENT DATE: 20151022
